FAERS Safety Report 24610531 (Version 1)
Quarter: 2024Q4

REPORT INFORMATION
  Report Type: Spontaneous
  Country: US (occurrence: US)
  Receive Date: 20241112
  Receipt Date: 20241112
  Transmission Date: 20250114
  Serious: No
  Sender: SUNOVION
  Company Number: US-SUMITOMO PHARMA SWITZERLAND GMBH-2024SPA004907

PATIENT

DRUGS (2)
  1. GEMTESA [Suspect]
     Active Substance: VIBEGRON
     Dosage: UNK
     Route: 048
     Dates: end: 20240801
  2. GEMTESA [Suspect]
     Active Substance: VIBEGRON
     Dosage: UNK
     Route: 048
     Dates: start: 20240815

REACTIONS (2)
  - Pollakiuria [Unknown]
  - Therapy interrupted [Unknown]
